FAERS Safety Report 20616073 (Version 2)
Quarter: 2022Q2

REPORT INFORMATION
  Report Type: Spontaneous
  Country: US (occurrence: US)
  Receive Date: 20220321
  Receipt Date: 20220506
  Transmission Date: 20220721
  Serious: Yes (Other)
  Sender: FDA-Public Use
  Company Number: US-BAYER-2022A038358

PATIENT
  Age: 53 Year
  Sex: Female
  Weight: 119.73 kg

DRUGS (3)
  1. ALEVE [Suspect]
     Active Substance: NAPROXEN SODIUM
     Route: 048
  2. RINVOQ [Suspect]
     Active Substance: UPADACITINIB
     Indication: Rheumatoid arthritis
     Route: 048
  3. NAPROXEN [Suspect]
     Active Substance: NAPROXEN

REACTIONS (4)
  - Hepatic enzyme increased [Not Recovered/Not Resolved]
  - Arthralgia [Recovering/Resolving]
  - Knee operation [Recovering/Resolving]
  - Knee operation [Recovering/Resolving]

NARRATIVE: CASE EVENT DATE: 20210101
